FAERS Safety Report 6003537-7 (Version None)
Quarter: 2008Q4

REPORT INFORMATION
  Report Type: 
  Country: None (occurrence: None)
  Receive Date: 20081212
  Receipt Date: 20081212
  Transmission Date: 20090506
  Serious: Yes (Death)
  Sender: FDA-Public Use
  Company Number: None

PATIENT
  Age: 80 Year
  Sex: Male
  Weight: 79.3795 kg

DRUGS (1)
  1. HEPARIN [Suspect]

REACTIONS (10)
  - ANAPHYLACTIC SHOCK [None]
  - COAGULOPATHY [None]
  - GANGRENE [None]
  - HYPOTENSION [None]
  - INJECTION SITE NECROSIS [None]
  - MEDICAL DEVICE SITE REACTION [None]
  - MULTI-ORGAN FAILURE [None]
  - NECROSIS [None]
  - PNEUMONIA [None]
  - RENAL FAILURE [None]
